FAERS Safety Report 11276441 (Version 1)
Quarter: 2015Q3

REPORT INFORMATION
  Report Type: Spontaneous
  Country: BE (occurrence: BE)
  Receive Date: 20150716
  Receipt Date: 20150716
  Transmission Date: 20151125
  Serious: Yes (Hospitalization, Other)
  Sender: FDA-Public Use
  Company Number: BE-009507513-1507BEL004838

PATIENT
  Age: 76 Year
  Sex: Female

DRUGS (1)
  1. ESMERON [Suspect]
     Active Substance: ROCURONIUM BROMIDE
     Indication: ENDOTRACHEAL INTUBATION
     Dosage: TOTAL DAILY DOSE: 50 MG, QD
     Dates: start: 20150630, end: 20150630

REACTIONS (2)
  - Anaphylactic shock [Not Recovered/Not Resolved]
  - Cardiogenic shock [Unknown]

NARRATIVE: CASE EVENT DATE: 20150630
